FAERS Safety Report 9483013 (Version 1)
Quarter: 2013Q3

REPORT INFORMATION
  Report Type: Spontaneous
  Country: US (occurrence: US)
  Receive Date: 20130828
  Receipt Date: 20130828
  Transmission Date: 20140515
  Serious: Yes (Death)
  Sender: FDA-Public Use
  Company Number: US-AMGEN-US072054

PATIENT
  Age: 53 Year
  Sex: Female

DRUGS (3)
  1. ENBREL [Suspect]
     Indication: RHEUMATOID ARTHRITIS
     Dosage: UNK UNK, UNK
     Route: 058
     Dates: end: 2003
  2. PREDNISONE [Concomitant]
  3. TYLOX [Concomitant]

REACTIONS (4)
  - Myocardial infarction [Fatal]
  - Thrombosis [Fatal]
  - Gangrene [Fatal]
  - Leg amputation [Fatal]
